FAERS Safety Report 9326703 (Version 1)
Quarter: 2013Q2

REPORT INFORMATION
  Report Type: Spontaneous
  Country: TR (occurrence: None)
  Receive Date: 20130530
  Receipt Date: 20130530
  Transmission Date: 20140414
  Serious: Yes (Death, Hospitalization, Other)
  Sender: FDA-Public Use
  Company Number: 2013P1006151

PATIENT
  Age: 18 Year
  Sex: Female

DRUGS (2)
  1. RIFAMPIN [Suspect]
     Indication: BRUCELLOSIS
  2. DOXYCYCLINE [Concomitant]

REACTIONS (16)
  - Rash [None]
  - Rash [None]
  - Loss of consciousness [None]
  - Aphasia [None]
  - Hemiparesis [None]
  - Haemoglobin decreased [None]
  - White blood cell count decreased [None]
  - Petechiae [None]
  - Ecchymosis [None]
  - Somnolence [None]
  - Musculoskeletal stiffness [None]
  - Meningism [None]
  - Thrombocytopenia [None]
  - Stupor [None]
  - Epilepsy [None]
  - Haemorrhage intracranial [None]
